FAERS Safety Report 6177130-X (Version None)
Quarter: 2009Q2

REPORT INFORMATION
  Report Type: 
  Country: None (occurrence: None)
  Receive Date: 20090504
  Receipt Date: 20090429
  Transmission Date: 20091009
  Serious: Yes (Other)
  Sender: FDA-Public Use
  Company Number: US-BRISTOL-MYERS SQUIBB COMPANY-14606107

PATIENT
  Age: 41 Year
  Sex: Female
  Weight: 47 kg

DRUGS (5)
  1. ERBITUX [Suspect]
     Indication: COLORECTAL CANCER
     Dates: start: 20081101
  2. ATIVAN [Concomitant]
  3. POTASSIUM CHLORIDE [Concomitant]
  4. PRILOSEC [Concomitant]
  5. MARINOL [Concomitant]

REACTIONS (4)
  - DEHYDRATION [None]
  - RASH [None]
  - TRANSIENT ISCHAEMIC ATTACK [None]
  - WEIGHT DECREASED [None]
